FAERS Safety Report 21389349 (Version 1)
Quarter: 2022Q3

REPORT INFORMATION
  Report Type: Spontaneous
  Country: FR (occurrence: FR)
  Receive Date: 20220929
  Receipt Date: 20220929
  Transmission Date: 20221027
  Serious: Yes (Hospitalization)
  Sender: FDA-Public Use
  Company Number: None

PATIENT
  Age: 68 Year
  Sex: Male
  Weight: 72.6 kg

DRUGS (4)
  1. TECENTRIQ [Suspect]
     Active Substance: ATEZOLIZUMAB
     Indication: Hepatocellular carcinoma
     Route: 065
     Dates: start: 20220812, end: 20220812
  2. AVASTIN [Suspect]
     Active Substance: BEVACIZUMAB
     Indication: Hepatocellular carcinoma
     Route: 065
     Dates: start: 20220812, end: 20220812
  3. HERBALS\SAW PALMETTO [Concomitant]
     Active Substance: HERBALS\SAW PALMETTO
  4. FOLIC ACID [Concomitant]
     Active Substance: FOLIC ACID

REACTIONS (2)
  - Haemoptysis [Not Recovered/Not Resolved]
  - Thrombocytopenic purpura [Not Recovered/Not Resolved]

NARRATIVE: CASE EVENT DATE: 20220829
